FAERS Safety Report 17828007 (Version 2)
Quarter: 2020Q3

REPORT INFORMATION
  Report Type: Report from Study
  Country: BR (occurrence: BR)
  Receive Date: 20200527
  Receipt Date: 20200825
  Transmission Date: 20201102
  Serious: Yes (Other)
  Sender: FDA-Public Use
  Company Number: NVSC2020BR143034

PATIENT
  Sex: Female
  Weight: 37 kg

DRUGS (1)
  1. OMNITROPE [Suspect]
     Active Substance: SOMATROPIN
     Indication: GROWTH DISORDER
     Dosage: 1.9 ML, UNKNOWN
     Route: 058
     Dates: start: 201905

REACTIONS (2)
  - Skin discolouration [Recovered/Resolved]
  - Haemorrhage [Unknown]
